FAERS Safety Report 24864603 (Version 1)
Quarter: 2025Q1

REPORT INFORMATION
  Report Type: Report from Study
  Country: CA (occurrence: CA)
  Receive Date: 20250120
  Receipt Date: 20250120
  Transmission Date: 20250409
  Serious: Yes (Other)
  Sender: ACCORD
  Company Number: None

PATIENT
  Age: 85 Year
  Sex: Male

DRUGS (1)
  1. LEUPROLIDE [Suspect]
     Active Substance: LEUPROLIDE
     Indication: Prostate cancer
     Route: 030

REACTIONS (8)
  - Injection site induration [Recovered/Resolved]
  - Injection site swelling [Recovered/Resolved]
  - Injection site pain [Recovered/Resolved]
  - Poor quality device used [Recovered/Resolved]
  - Purulent discharge [Recovered/Resolved]
  - Injection site discharge [Recovered/Resolved]
  - Injection site infection [Recovered/Resolved]
  - Injection site erythema [Recovered/Resolved]
